FAERS Safety Report 8824914 (Version 2)
Quarter: 2015Q2

REPORT INFORMATION
  Report Type: Report from Study
  Country: US (occurrence: US)
  Receive Date: 20121004
  Receipt Date: 20150415
  Transmission Date: 20150821
  Serious: Yes (Death, Hospitalization)
  Sender: FDA-Public Use
  Company Number: US-ROCHE-1130199

PATIENT
  Sex: Male

DRUGS (23)
  1. RITUXAN [Suspect]
     Active Substance: RITUXIMAB
     Indication: HODGKIN^S DISEASE
     Route: 042
  2. MANNITOL. [Concomitant]
     Active Substance: MANNITOL
     Route: 042
  3. DEMEROL [Concomitant]
     Active Substance: MEPERIDINE HYDROCHLORIDE
     Route: 065
  4. ACIPHEX [Concomitant]
     Active Substance: RABEPRAZOLE SODIUM
  5. ACIPHEX [Concomitant]
     Active Substance: RABEPRAZOLE SODIUM
     Route: 065
  6. ASPIRIN. [Concomitant]
     Active Substance: ASPIRIN
     Route: 065
  7. LOCOID LIPOCREAM [Concomitant]
     Active Substance: HYDROCORTISONE BUTYRATE
  8. LEXAPRO [Concomitant]
     Active Substance: ESCITALOPRAM OXALATE
     Route: 065
  9. ZANTAC [Concomitant]
     Active Substance: RANITIDINE HYDROCHLORIDE
     Route: 042
  10. LIGNOCAINE [Concomitant]
     Active Substance: LIDOCAINE HYDROCHLORIDE
  11. CISPLATIN. [Concomitant]
     Active Substance: CISPLATIN
     Route: 065
  12. ATIVAN [Concomitant]
     Active Substance: LORAZEPAM
     Route: 042
  13. RITUXAN [Suspect]
     Active Substance: RITUXIMAB
     Indication: OFF LABEL USE
  14. PREDNISONE. [Concomitant]
     Active Substance: PREDNISONE
  15. GEMZAR [Concomitant]
     Active Substance: GEMCITABINE HYDROCHLORIDE
     Route: 042
  16. ZOFRAN [Concomitant]
     Active Substance: ONDANSETRON HYDROCHLORIDE
     Route: 048
  17. DECADRON [Concomitant]
     Active Substance: DEXAMETHASONE
     Route: 042
  18. ARANESP [Concomitant]
     Active Substance: DARBEPOETIN ALFA
     Route: 058
  19. KYTRIL [Concomitant]
     Active Substance: GRANISETRON HYDROCHLORIDE
     Route: 042
  20. SOTALOL. [Concomitant]
     Active Substance: SOTALOL
     Route: 065
  21. LEXAPRO [Concomitant]
     Active Substance: ESCITALOPRAM OXALATE
  22. ALOXI [Concomitant]
     Active Substance: PALONOSETRON HYDROCHLORIDE
     Route: 042
  23. BENADRYL [Concomitant]
     Active Substance: DIPHENHYDRAMINE HYDROCHLORIDE
     Route: 042

REACTIONS (19)
  - Anaemia [Unknown]
  - Tachycardia [Unknown]
  - Pyrexia [Unknown]
  - Decreased appetite [Unknown]
  - Diarrhoea [Unknown]
  - Neutropenia [Unknown]
  - Eczema [Unknown]
  - Hodgkin^s disease [Unknown]
  - Death [Fatal]
  - Rash [Unknown]
  - Depression [Unknown]
  - Abdominal pain [Unknown]
  - Dyspnoea [Unknown]
  - Cough [Unknown]
  - Dry skin [Unknown]
  - Hypotension [Unknown]
  - Insomnia [Unknown]
  - Dehydration [Unknown]
  - Weight decreased [Unknown]
